FAERS Safety Report 9667366 (Version 1)
Quarter: 2013Q4

REPORT INFORMATION
  Report Type: Spontaneous
  Country: US (occurrence: US)
  Receive Date: 20131104
  Receipt Date: 20131104
  Transmission Date: 20140711
  Serious: No
  Sender: FDA-Public Use
  Company Number: US-BIOGENIDEC-2013BI090960

PATIENT
  Age: 51 Year
  Sex: Female

DRUGS (3)
  1. TECFIDERA [Suspect]
     Indication: MULTIPLE SCLEROSIS
     Dates: start: 201308
  2. TECFIDERA [Suspect]
     Indication: MULTIPLE SCLEROSIS
  3. AVONEX [Concomitant]
     Route: 030
     Dates: start: 20050403

REACTIONS (6)
  - Pyrexia [Not Recovered/Not Resolved]
  - Lip swelling [Not Recovered/Not Resolved]
  - Oedema mouth [Not Recovered/Not Resolved]
  - Prescribed underdose [Unknown]
  - Flushing [Not Recovered/Not Resolved]
  - Rash [Not Recovered/Not Resolved]
